FAERS Safety Report 4521009-3 (Version None)
Quarter: 2004Q4

REPORT INFORMATION
  Report Type: 
  Country: None (occurrence: None)
  Receive Date: 20041206
  Receipt Date: 20041124
  Transmission Date: 20050328
  Serious: Yes (Hospitalization)
  Sender: FDA-Public Use
  Company Number: 2004-122818-NL

PATIENT
  Age: 51 Year
  Sex: Female

DRUGS (5)
  1. MIRTAZAPINE [Suspect]
     Dosage: 15 MG ORAL
     Route: 048
     Dates: start: 20040427, end: 20040528
  2. NOCTRAN 10 [Concomitant]
  3. BETAHISTINE HYDROCHLORIDE [Concomitant]
  4. ALIMEMAZINE TARTRATE [Concomitant]
  5. OXAZEPAM [Concomitant]

REACTIONS (3)
  - CYTOLYTIC HEPATITIS [None]
  - MYALGIA [None]
  - NECK PAIN [None]
